FAERS Safety Report 5352265-X (Version None)
Quarter: 2007Q2

REPORT INFORMATION
  Report Type: 
  Country: None (occurrence: None)
  Receive Date: 20070611
  Receipt Date: 20070605
  Transmission Date: 20071010
  Serious: Yes (Hospitalization)
  Sender: FDA-Public Use
  Company Number: FR-AVENTIS-200711893FR

PATIENT
  Age: 38 Year
  Sex: Male

DRUGS (3)
  1. ARAVA [Suspect]
     Route: 048
     Dates: start: 20060715
  2. CORTANCYL [Suspect]
     Route: 048
  3. VOLTAREN [Suspect]
     Indication: PAIN
     Route: 048
     Dates: start: 20060715, end: 20070515

REACTIONS (2)
  - HYPOALBUMINAEMIA [None]
  - PROTEINURIA [None]
